FAERS Safety Report 13070669 (Version 1)
Quarter: 2016Q4

REPORT INFORMATION
  Report Type: Report from Study
  Country: US (occurrence: US)
  Receive Date: 20161229
  Receipt Date: 20161229
  Transmission Date: 20170207
  Serious: Yes (Other)
  Sender: FDA-Public Use
  Company Number: US-ROCHE-1870756

PATIENT

DRUGS (3)
  1. BEVACIZUMAB [Suspect]
     Active Substance: BEVACIZUMAB
     Indication: NEUROBLASTOMA RECURRENT
     Dosage: AS PER PROTOCOL
     Route: 042
     Dates: start: 20110516
  2. CYCLOPHOSPHAMIDE. [Suspect]
     Active Substance: CYCLOPHOSPHAMIDE
     Indication: NEUROBLASTOMA RECURRENT
     Dosage: AS PER PROTOCOL
     Route: 040
     Dates: start: 20110516
  3. ZOLEDRONIC ACID [Suspect]
     Active Substance: ZOLEDRONIC ACID
     Indication: NEUROBLASTOMA RECURRENT
     Dosage: AS PER PROTOCOL
     Route: 042
     Dates: start: 20110516

REACTIONS (4)
  - Bone marrow toxicity [Unknown]
  - Neutropenia [Unknown]
  - Toxicity to various agents [Unknown]
  - Pain in extremity [Unknown]
